FAERS Safety Report 4663193-7 (Version None)
Quarter: 2005Q2

REPORT INFORMATION
  Report Type: 
  Country: None (occurrence: None)
  Receive Date: 20050517
  Receipt Date: 20050509
  Transmission Date: 20051028
  Serious: Yes (Hospitalization)
  Sender: FDA-Public Use
  Company Number: JP-JNJFOC-20050406208

PATIENT
  Sex: Male
  Weight: 49.6 kg

DRUGS (5)
  1. REMICADE [Suspect]
     Route: 042
  2. REMICADE [Suspect]
     Route: 042
  3. REMICADE [Suspect]
     Indication: CROHN'S DISEASE
     Route: 042
  4. RHEUMATREX [Concomitant]
  5. PENTASA [Concomitant]
     Indication: CROHN'S DISEASE
     Dosage: 9 TABS DAILY DOSE

REACTIONS (3)
  - GOITRE [None]
  - PHARYNGOLARYNGEAL PAIN [None]
  - PYREXIA [None]
